FAERS Safety Report 22253874 (Version 1)
Quarter: 2023Q2

REPORT INFORMATION
  Report Type: Spontaneous
  Country: US (occurrence: None)
  Receive Date: 20230424
  Receipt Date: 20230424
  Transmission Date: 20230721
  Serious: Yes (Life-Threatening, Hospitalization, Other)
  Sender: FDA-Public Use
  Company Number: None

PATIENT
  Age: 69 Year
  Sex: Female
  Weight: 72.57 kg

DRUGS (2)
  1. JARDIANCE [Suspect]
     Active Substance: EMPAGLIFLOZIN
     Indication: Type 2 diabetes mellitus
     Dosage: 25 MG 1/DAY PO
     Dates: start: 20230103, end: 20230322
  2. JARDIANCE [Suspect]
     Active Substance: EMPAGLIFLOZIN
     Indication: Type 2 diabetes mellitus
     Dosage: UNIT: 25 MG  90 DAT / 1 BOTTLE  ?25MG  / DAY PO??30 DAYS / BOTTLE
     Route: 048
     Dates: start: 20230107

REACTIONS (3)
  - Cellulitis [None]
  - Abscess limb [None]
  - Staphylococcal infection [None]

NARRATIVE: CASE EVENT DATE: 20230323
